FAERS Safety Report 12105934 (Version 1)
Quarter: 2016Q1

REPORT INFORMATION
  Report Type: Spontaneous
  Country: SE (occurrence: SE)
  Receive Date: 20160223
  Receipt Date: 20160223
  Transmission Date: 20160526
  Serious: Yes (Life-Threatening, Hospitalization)
  Sender: FDA-Public Use
  Company Number: SE-UCBSA-2016006404

PATIENT
  Age: 73 Year
  Sex: Female

DRUGS (2)
  1. CIMZIA [Suspect]
     Active Substance: CERTOLIZUMAB PEGOL
     Indication: RHEUMATOID ARTHRITIS
     Dosage: 200 MG, UNK, PRE FILLED SYRINGE
     Dates: start: 20120327, end: 20150707
  2. METHOTREXATE [Concomitant]
     Active Substance: METHOTREXATE
     Indication: PRODUCT USED FOR UNKNOWN INDICATION
     Dosage: 10 MG
     Dates: start: 20100311, end: 20150707

REACTIONS (1)
  - Oesophageal squamous cell carcinoma [Unknown]

NARRATIVE: CASE EVENT DATE: 20150515
